FAERS Safety Report 23972832 (Version 1)
Quarter: 2024Q2

REPORT INFORMATION
  Report Type: Report from Study
  Country: US (occurrence: None)
  Receive Date: 20240613
  Receipt Date: 20240613
  Transmission Date: 20240716
  Serious: Yes (Other)
  Sender: FDA-Public Use
  Company Number: 2024A133816

PATIENT
  Age: 21117 Day
  Sex: Female

DRUGS (1)
  1. SAPHNELO [Suspect]
     Active Substance: ANIFROLUMAB\ANIFROLUMAB-FNIA
     Indication: Systemic lupus erythematosus
     Route: 042
     Dates: start: 20240213

REACTIONS (2)
  - Malignant melanoma [Unknown]
  - Precancerous condition [Not Recovered/Not Resolved]

NARRATIVE: CASE EVENT DATE: 20240604
